FAERS Safety Report 22257285 (Version 2)
Quarter: 2024Q2

REPORT INFORMATION
  Report Type: Spontaneous
  Country: US (occurrence: US)
  Receive Date: 20230427
  Receipt Date: 20240510
  Transmission Date: 20240716
  Serious: Yes (Other)
  Sender: FDA-Public Use
  Company Number: US-BMS-IMIDS-REMS-SI-10305483

PATIENT

DRUGS (1)
  1. LENALIDOMIDE [Suspect]
     Active Substance: LENALIDOMIDE
     Indication: Product used for unknown indication
     Dosage: 10 MILLIGRAM, UNK
     Route: 065
     Dates: start: 202302

REACTIONS (3)
  - Blister [Unknown]
  - Seizure [Unknown]
  - Urticaria [Unknown]

NARRATIVE: CASE EVENT DATE: 20230412
